FAERS Safety Report 4393802-1 (Version None)
Quarter: 2004Q3

REPORT INFORMATION
  Report Type: 
  Country: None (occurrence: None)
  Receive Date: 20040706
  Receipt Date: 20040629
  Transmission Date: 20050211
  Serious: Yes (Hospitalization)
  Sender: FDA-Public Use
  Company Number: 24229

PATIENT
  Age: 82 Year
  Sex: Male

DRUGS (4)
  1. TAMBOCOR [Suspect]
     Indication: ATRIAL FIBRILLATION
     Dosage: 100 MG (1 I DAY(S))
     Route: 048
     Dates: start: 20030728, end: 20040610
  2. PERSANTIN-L (DIPYRIDAMOLE) [Concomitant]
  3. PROMAC (POLAPREZINC) [Concomitant]
  4. QVAR (HFA - UNSPECIFIFED MDI) (BECLOMETHASONE DIPROPIONATE) [Concomitant]

REACTIONS (8)
  - ATRIAL FIBRILLATION [None]
  - CONDITION AGGRAVATED [None]
  - CONTUSION [None]
  - FALL [None]
  - GASTRITIS [None]
  - LOSS OF CONSCIOUSNESS [None]
  - SINUS ARREST [None]
  - VERTIGO [None]
